FAERS Safety Report 7943352-8 (Version None)
Quarter: 2011Q4

REPORT INFORMATION
  Report Type: 
  Country: None (occurrence: None)
  Receive Date: 20111122
  Receipt Date: 20110628
  Transmission Date: 20120403
  Serious: Yes (Other)
  Sender: FDA-Public Use
  Company Number: PHHY2011US40758

PATIENT
  Age: 44 Year
  Sex: Male
  Weight: 81.6475 kg

DRUGS (6)
  1. MOTRIN [Concomitant]
  2. GILENYA [Suspect]
     Indication: RELAPSING-REMITTING MULTIPLE SCLEROSIS
     Dosage: 0.5 MG, QD, ORAL
     Route: 048
     Dates: start: 20110511, end: 20110519
  3. CELEXA (CITALOPRAM HYDROBROMIDE) ONGOING [Concomitant]
  4. NORCO (HYDROCODONE BITARTRATE, PARACETAMOL) TABLET [Concomitant]
  5. TOPAMAX [Concomitant]
  6. NAPROXEN (ALEVE) [Concomitant]

REACTIONS (10)
  - CHEST PAIN [None]
  - VISION BLURRED [None]
  - VOMITING [None]
  - DIARRHOEA [None]
  - DYSPNOEA [None]
  - NAUSEA [None]
  - BLOOD PRESSURE DECREASED [None]
  - BRADYCARDIA [None]
  - VERTIGO POSITIONAL [None]
  - HEADACHE [None]
